FAERS Safety Report 16309898 (Version 1)
Quarter: 2019Q2

REPORT INFORMATION
  Report Type: Spontaneous
  Country: US (occurrence: US)
  Receive Date: 20190408
  Receipt Date: 20190408
  Transmission Date: 20190711
  Serious: Yes (Hospitalization)
  Sender: FDA-Public Use
  Company Number: None

PATIENT
  Age: 29 Year
  Sex: Female

DRUGS (11)
  1. MORPHINE [Concomitant]
     Active Substance: MORPHINE
  2. HYDROXYUREA. [Concomitant]
     Active Substance: HYDROXYUREA
  3. SPIRONOLACTONE. [Concomitant]
     Active Substance: SPIRONOLACTONE
  4. ELIQUIS [Concomitant]
     Active Substance: APIXABAN
  5. DIGOXIN. [Concomitant]
     Active Substance: DIGOXIN
  6. LASIX [Concomitant]
     Active Substance: FUROSEMIDE
  7. JADENU [Suspect]
     Active Substance: DEFERASIROX
     Indication: SICKLE CELL DISEASE
     Route: 048
     Dates: start: 20190201
  8. VITAMIN C [Concomitant]
     Active Substance: ASCORBIC ACID
  9. AMIODARONE [Concomitant]
     Active Substance: AMIODARONE
  10. METOPROLOL. [Concomitant]
     Active Substance: METOPROLOL
  11. LOSARTAN. [Concomitant]
     Active Substance: LOSARTAN

REACTIONS (2)
  - Sickle cell anaemia with crisis [None]
  - Atrial fibrillation [None]
